FAERS Safety Report 23105447 (Version 1)
Quarter: 2023Q4

REPORT INFORMATION
  Report Type: Report from Study
  Country: AR (occurrence: AR)
  Receive Date: 20231025
  Receipt Date: 20231025
  Transmission Date: 20240109
  Serious: Yes (Life-Threatening, Hospitalization)
  Sender: FDA-Public Use
  Company Number: AR-JNJFOC-20231056171

PATIENT
  Age: 17 Year
  Sex: Female

DRUGS (1)
  1. REMICADE [Suspect]
     Active Substance: INFLIXIMAB
     Indication: Colitis ulcerative
     Route: 041
     Dates: start: 20231017

REACTIONS (3)
  - Rectal haemorrhage [Unknown]
  - Dehydration [Unknown]
  - Anaemia [Unknown]

NARRATIVE: CASE EVENT DATE: 20231001
